FAERS Safety Report 13840363 (Version 1)
Quarter: 2017Q3

REPORT INFORMATION
  Report Type: Spontaneous
  Country: JP (occurrence: JP)
  Receive Date: 20170807
  Receipt Date: 20170807
  Transmission Date: 20171127
  Serious: Yes (Hospitalization, Other)
  Sender: FDA-Public Use
  Company Number: JP-PFIZER INC-2017239916

PATIENT
  Age: 78 Year
  Sex: Female
  Weight: 53.5 kg

DRUGS (15)
  1. PREDONINE [Suspect]
     Active Substance: PREDNISOLONE
     Dosage: 30 MG, UNK
     Dates: start: 20170210
  2. PREDONINE [Suspect]
     Active Substance: PREDNISOLONE
     Dosage: 22.5 MG, DAILY
     Dates: start: 20170414
  3. PREDONINE [Suspect]
     Active Substance: PREDNISOLONE
     Dosage: 17.5 MG, DAILY
     Dates: start: 20170312
  4. FOSAMAC [Concomitant]
     Active Substance: ALENDRONATE SODIUM
     Indication: OSTEOPOROSIS
     Dosage: 35 MG, WEEKLY
     Route: 048
     Dates: start: 20150331, end: 20170730
  5. PREDONINE [Concomitant]
     Active Substance: PREDNISOLONE
     Indication: RHEUMATOID ARTHRITIS
     Dosage: 5 MG, 1X/DAY
     Route: 048
     Dates: start: 20150331, end: 20170106
  6. FOLIAMIN [Concomitant]
     Active Substance: FOLIC ACID
     Dosage: 5 MG, WEEKLY
     Route: 048
     Dates: start: 20150331, end: 20161229
  7. ENBREL [Suspect]
     Active Substance: ETANERCEPT
     Dosage: 50 MG, WEEKLY
     Route: 058
     Dates: start: 20150730, end: 20161229
  8. PREDONINE [Suspect]
     Active Substance: PREDNISOLONE
     Indication: INTERSTITIAL LUNG DISEASE
     Dosage: 30 MG, DAILY
  9. PREDONINE [Suspect]
     Active Substance: PREDNISOLONE
     Dosage: 20 MG, DAILY
     Dates: start: 20170428
  10. PREDONINE [Suspect]
     Active Substance: PREDNISOLONE
     Dosage: 15 MG, DAILY
     Dates: start: 20170730
  11. ENBREL [Suspect]
     Active Substance: ETANERCEPT
     Indication: RHEUMATOID ARTHRITIS
     Dosage: 25 MG, WEEKLY
     Route: 058
     Dates: start: 20150723, end: 20150730
  12. PREDONINE [Suspect]
     Active Substance: PREDNISOLONE
     Dosage: 20 MG, UNK
  13. PREDONINE [Suspect]
     Active Substance: PREDNISOLONE
     Dosage: 15 MG, DAILY
     Dates: start: 20170526
  14. RHEUMATREX [Suspect]
     Active Substance: METHOTREXATE SODIUM
     Indication: RHEUMATOID ARTHRITIS
     Dosage: 8 MG, WEEKLY
     Route: 048
     Dates: start: 20150331, end: 20161229
  15. PREDONINE [Suspect]
     Active Substance: PREDNISOLONE
     Dosage: 25 MG, DAILY

REACTIONS (3)
  - Diabetes mellitus [Unknown]
  - Interstitial lung disease [Recovered/Resolved]
  - Oral candidiasis [Recovered/Resolved]

NARRATIVE: CASE EVENT DATE: 20161229
